FAERS Safety Report 9041999 (Version 1)
Quarter: 2013Q1

REPORT INFORMATION
  Report Type: Report from Study
  Country: US (occurrence: US)
  Receive Date: 20130129
  Receipt Date: 20130129
  Transmission Date: 20140127
  Serious: No
  Sender: FDA-Public Use
  Company Number: US-ABBOTT-12P-163-0905008-00

PATIENT
  Age: 60 Year
  Sex: Female

DRUGS (14)
  1. HUMIRA 40 MG/0.8 ML PEN [Suspect]
     Indication: RHEUMATOID ARTHRITIS
     Dates: start: 20120119
  2. HUMIRA 40 MG/0.8 ML PEN [Suspect]
     Dates: start: 20120215
  3. AUGMENTIN [Suspect]
     Indication: SINUSITIS
  4. DOXYCYCLINE [Suspect]
     Indication: SINUSITIS
  5. METHOTREXATE [Concomitant]
     Indication: ARTHRITIS
     Dosage: WEEKLY
     Route: 048
  6. GABAPENTIN [Concomitant]
     Indication: FIBROMYALGIA
  7. PRILOSEC [Concomitant]
     Indication: GASTROOESOPHAGEAL REFLUX DISEASE
     Dosage: DAILY
     Route: 048
  8. MULTIVITAMIN [Concomitant]
     Indication: ROUTINE HEALTH MAINTENANCE
     Dosage: DAILY
     Route: 048
  9. PRAVASTATIN [Concomitant]
     Indication: BLOOD CHOLESTEROL INCREASED
     Dosage: DAILY
     Route: 048
  10. WELLBUTRIN [Concomitant]
     Indication: ANXIETY
     Route: 048
  11. TRAZADONE [Concomitant]
     Indication: INSOMNIA
     Dosage: IN EVENING
     Route: 048
  12. FOLIC ACID [Concomitant]
     Indication: ILL-DEFINED DISORDER
     Dosage: TWICE DAILY,EXCEPT ON THE DAYS THAT SHE TAKES METHOTREXATE
     Route: 048
  13. VITAMIN D3 [Concomitant]
     Indication: SUPPLEMENTATION THERAPY
     Dosage: DAILY
     Route: 048
  14. DUCOLOX [Concomitant]
     Indication: CONSTIPATION
     Dosage: DAILY AT BEDTIME
     Route: 048

REACTIONS (6)
  - Injection site pain [Recovered/Resolved]
  - Sinusitis [Recovered/Resolved]
  - Facial pain [Recovered/Resolved]
  - Nasal congestion [Recovered/Resolved]
  - Rhinorrhoea [Recovered/Resolved]
  - Urticaria [Unknown]
